FAERS Safety Report 8963205 (Version 2)
Quarter: 2013Q1

REPORT INFORMATION
  Report Type: Report from Study
  Country: JP (occurrence: JP)
  Receive Date: 20121213
  Receipt Date: 20130208
  Transmission Date: 20140127
  Serious: Yes (Other)
  Sender: FDA-Public Use
  Company Number: JP-OTSUKA-JP-2012-17086

PATIENT
  Age: 84 Year
  Sex: Male
  Weight: 53 kg

DRUGS (7)
  1. SAMSCA [Suspect]
     Indication: FLUID RETENTION
     Dosage: 7.5 MG MILLIGRAM(S), QAM
     Route: 048
     Dates: start: 20121026, end: 20121127
  2. LASIX [Concomitant]
     Indication: CARDIAC FAILURE
     Dosage: 40 MG MILLIGRAM(S), DAILY DOSE
     Route: 042
     Dates: end: 20121106
  3. DOBUTREX [Concomitant]
     Indication: CARDIAC FAILURE
     Dosage: 200 MG MILLIGRAM(S), DAILY DOSE
     Route: 041
     Dates: end: 20121107
  4. COVERSYL [Concomitant]
     Indication: CARDIAC FAILURE
     Dosage: 4 MG MILLIGRAM(S), DAILY DOSE
     Route: 048
  5. MAINTATE [Concomitant]
     Indication: CARDIAC FAILURE
     Dosage: 0.625 MG MILLIGRAM(S), DAILY DOSE
     Route: 048
  6. LASIX [Concomitant]
     Indication: CARDIAC FAILURE
     Dosage: 20 MG MILLIGRAM(S), DAILY DOSE
     Route: 048
  7. ALDACTONE A [Concomitant]
     Indication: CARDIAC FAILURE
     Dosage: 25 MG MILLIGRAM(S), DAILY DOSE
     Route: 048

REACTIONS (4)
  - Blood urea increased [Recovered/Resolved]
  - Thirst [Recovered/Resolved]
  - Blood creatinine increased [Recovered/Resolved]
  - Dehydration [Recovered/Resolved]
